FAERS Safety Report 11168422 (Version 1)
Quarter: 2015Q2

REPORT INFORMATION
  Report Type: Spontaneous
  Country: US (occurrence: None)
  Receive Date: 20150515
  Receipt Date: 20150515
  Transmission Date: 20150821
  Serious: Yes (Other)
  Sender: FDA-Public Use
  Company Number: 2015002665

PATIENT
  Age: 64 Year
  Sex: Male

DRUGS (6)
  1. CIMZIA [Suspect]
     Active Substance: CERTOLIZUMAB PEGOL
     Indication: CROHN^S DISEASE
     Dosage: 400 MG, EV 4 WEEKS, SUBCUTANEOUS
     Route: 058
     Dates: start: 201408, end: 20141225
  2. PREDNISONE (PREDNISONE ACETATE) [Concomitant]
  3. TAXOL [Concomitant]
     Active Substance: PACLITAXEL
  4. BALSALAZIDE DISODIUM (BALSALAZIDE SODIUM) [Concomitant]
  5. CIMZIA [Suspect]
     Active Substance: CERTOLIZUMAB PEGOL
     Indication: COLITIS
     Dosage: 400 MG, EV 4 WEEKS, SUBCUTANEOUS
     Route: 058
     Dates: start: 201408, end: 20141225
  6. OMEPRAZOLE. [Concomitant]
     Active Substance: OMEPRAZOLE

REACTIONS (5)
  - Fall [None]
  - Gait disturbance [None]
  - Syncope [None]
  - Head injury [None]
  - Psoriasis [None]

NARRATIVE: CASE EVENT DATE: 201409
